FAERS Safety Report 6371592-0 (Version None)
Quarter: 2009Q3

REPORT INFORMATION
  Report Type: 
  Country: None (occurrence: None)
  Receive Date: 20090923
  Receipt Date: 20070919
  Transmission Date: 20100115
  Serious: Yes (Hospitalization)
  Sender: FDA-Public Use
  Company Number: US-ASTRAZENECA-2007UW16435

PATIENT
  Age: 15443 Day
  Sex: Male
  Weight: 97.1 kg

DRUGS (17)
  1. SEROQUEL [Suspect]
     Dosage: 50-800 MG
     Route: 048
     Dates: start: 20031022
  2. REMERON [Concomitant]
     Route: 065
  3. LEXAPRO [Concomitant]
     Dosage: 10-20 MG
     Route: 065
  4. LISINOPRIL [Concomitant]
     Dosage: 10-20 MG
     Route: 048
  5. METHADONE [Concomitant]
     Dosage: 5-40 MG
     Route: 048
  6. ZONEGRAN [Concomitant]
     Route: 065
  7. NEURONTIN [Concomitant]
     Dosage: 300-600 MG
     Route: 065
  8. TRICOR [Concomitant]
     Dosage: 48-54 MG
     Route: 048
  9. GLUCOPHAGE [Concomitant]
     Route: 065
  10. DEPAKOTE ER [Concomitant]
     Route: 065
  11. MORPHINE SULFATE [Concomitant]
     Dosage: 2-4 MG
     Route: 042
  12. CYMBALTA [Concomitant]
     Dosage: 30-60 MG
     Route: 048
  13. ASPIRIN [Concomitant]
     Dosage: 81-325 MG
     Route: 048
  14. ACTOS [Concomitant]
     Route: 048
  15. ABILIFY [Concomitant]
     Dosage: 15-30 MG
     Route: 048
  16. ONDANSETRON [Concomitant]
     Indication: NAUSEA
     Route: 042
  17. ONDANSETRON [Concomitant]
     Indication: VOMITING
     Route: 042

REACTIONS (7)
  - CHEST PAIN [None]
  - COLITIS [None]
  - DIABETES MELLITUS [None]
  - HAEMATOCHEZIA [None]
  - OEDEMA PERIPHERAL [None]
  - RECTAL HAEMORRHAGE [None]
  - TOOTHACHE [None]
